FAERS Safety Report 5659487-9 (Version None)
Quarter: 2008Q1

REPORT INFORMATION
  Report Type: 
  Country: None (occurrence: None)
  Receive Date: 20080311
  Receipt Date: 20080305
  Transmission Date: 20080703
  Serious: Yes (Hospitalization)
  Sender: FDA-Public Use
  Company Number: PHNU2008DE01203

PATIENT
  Sex: Female

DRUGS (1)
  1. ISMELIN [Suspect]
     Indication: PAIN
     Route: 042
     Dates: start: 20071001

REACTIONS (6)
  - ANGINA PECTORIS [None]
  - CHEST DISCOMFORT [None]
  - LIMB DISCOMFORT [None]
  - MYOCARDIAL INFARCTION [None]
  - PAIN IN EXTREMITY [None]
  - STENT PLACEMENT [None]
